FAERS Safety Report 25884638 (Version 1)
Quarter: 2025Q4

REPORT INFORMATION
  Report Type: Spontaneous
  Country: US (occurrence: None)
  Receive Date: 20251003
  Receipt Date: 20251003
  Transmission Date: 20260118
  Serious: No
  Sender: FDA-CTU
  Company Number: None

PATIENT
  Age: 83 Year
  Sex: Male

DRUGS (1)
  1. OFEV [Suspect]
     Active Substance: NINTEDANIB
     Indication: Idiopathic pulmonary fibrosis
     Dosage: 100MG BID ORAL
     Route: 048
     Dates: start: 20201125, end: 20250829

REACTIONS (8)
  - Dyspnoea [None]
  - Confusional state [None]
  - Mental status changes [None]
  - Encephalopathy [None]
  - Tachycardia [None]
  - Tachypnoea [None]
  - Hypoxia [None]
  - Interstitial lung disease [None]

NARRATIVE: CASE EVENT DATE: 20250829
